FAERS Safety Report 23068745 (Version 1)
Quarter: 2023Q4

REPORT INFORMATION
  Report Type: Spontaneous
  Country: BY (occurrence: BY)
  Receive Date: 20231016
  Receipt Date: 20231016
  Transmission Date: 20240110
  Serious: Yes (Life-Threatening)
  Sender: FDA-Public Use
  Company Number: BY-JNJFOC-20231025170

PATIENT
  Age: 54 Year
  Sex: Female
  Weight: 64 kg

DRUGS (8)
  1. BEDAQUILINE [Suspect]
     Active Substance: BEDAQUILINE
     Indication: Product used for unknown indication
     Route: 048
     Dates: start: 20221129
  2. PRETOMANID [Suspect]
     Active Substance: PRETOMANID
     Indication: Product used for unknown indication
     Route: 048
     Dates: start: 20221129
  3. LINEZOLID [Suspect]
     Active Substance: LINEZOLID
     Indication: Product used for unknown indication
     Route: 048
     Dates: start: 20221129
  4. CLOFAZIMINE [Suspect]
     Active Substance: CLOFAZIMINE
     Indication: Product used for unknown indication
     Dosage: DRUG PERMANENTLY WITHDRAWN ON 11-JAN-2023
     Route: 048
     Dates: start: 20221129, end: 20230104
  5. ENALAPRIL [Concomitant]
     Active Substance: ENALAPRIL
     Indication: Myocardial ischaemia
     Dosage: 0.01 PER OS
     Route: 048
     Dates: start: 20221122
  6. ATORVASTATIN [Concomitant]
     Active Substance: ATORVASTATIN
     Indication: Hypercholesterolaemia
     Dosage: 0.01 PER OS
     Route: 048
     Dates: start: 20221122
  7. ASPIRIN [Concomitant]
     Active Substance: ASPIRIN
     Indication: Myocardial ischaemia
     Dosage: 0.075 PER OS
     Route: 048
     Dates: start: 20221122
  8. PYRIDOXINE [Concomitant]
     Active Substance: PYRIDOXINE
     Indication: Prophylaxis
     Route: 048
     Dates: start: 20221129, end: 20230516

REACTIONS (1)
  - Electrocardiogram QT prolonged [Recovered/Resolved]

NARRATIVE: CASE EVENT DATE: 20230103
